FAERS Safety Report 8610882-5 (Version None)
Quarter: 2012Q3

REPORT INFORMATION
  Report Type: 
  Country: None (occurrence: None)
  Receive Date: 20120808
  Receipt Date: 20120725
  Transmission Date: 20120928
  Serious: Yes (Death, Hospitalization, Other)
  Sender: FDA-Public Use
  Company Number: 2012MA009142

PATIENT
  Age: 52 Year
  Sex: Female

DRUGS (20)
  1. KADIAN [Suspect]
     Indication: COMPLETED SUICIDE
     Dosage: PO
     Route: 048
  2. KADIAN [Suspect]
     Indication: INTENTIONAL OVERDOSE
     Dosage: PO
     Route: 048
  3. ZOLPIDEM TARTRATE [Suspect]
     Indication: COMPLETED SUICIDE
     Dosage: PO
     Route: 048
  4. ZOLPIDEM TARTRATE [Suspect]
     Indication: INTENTIONAL OVERDOSE
     Dosage: PO
     Route: 048
  5. CLONAZEPAM [Suspect]
     Indication: COMPLETED SUICIDE
     Dosage: PO
     Route: 048
  6. CLONAZEPAM [Suspect]
     Indication: INTENTIONAL OVERDOSE
     Dosage: PO
     Route: 048
  7. FLUOXETINE [Suspect]
     Indication: INTENTIONAL OVERDOSE
     Dosage: PO
     Route: 048
  8. FLUOXETINE [Suspect]
     Indication: COMPLETED SUICIDE
     Dosage: PO
     Route: 048
  9. SERTRALINE HYDROCHLORIDE [Suspect]
     Indication: COMPLETED SUICIDE
     Dosage: PO
     Route: 048
  10. SERTRALINE HYDROCHLORIDE [Suspect]
     Indication: INTENTIONAL OVERDOSE
     Dosage: PO
     Route: 048
  11. TEMAZEPAM [Suspect]
     Indication: COMPLETED SUICIDE
     Dosage: PO
     Route: 048
  12. TEMAZEPAM [Suspect]
     Indication: INTENTIONAL OVERDOSE
     Dosage: PO
     Route: 048
  13. OLANZAPINE [Suspect]
     Indication: COMPLETED SUICIDE
     Dosage: PO
     Route: 048
  14. OLANZAPINE [Suspect]
     Indication: INTENTIONAL OVERDOSE
     Dosage: PO
     Route: 048
  15. TRAZODONE HYDROCHLORIDE [Suspect]
     Indication: INTENTIONAL OVERDOSE
     Dosage: PO
     Route: 048
  16. TRAZODONE HYDROCHLORIDE [Suspect]
     Indication: COMPLETED SUICIDE
     Dosage: PO
     Route: 048
  17. OXCARBAZEPINE [Suspect]
     Indication: INTENTIONAL OVERDOSE
     Dosage: PO
     Route: 048
  18. OXCARBAZEPINE [Suspect]
     Indication: COMPLETED SUICIDE
     Dosage: PO
     Route: 048
  19. LORAZEPAM [Suspect]
     Indication: INTENTIONAL OVERDOSE
     Dosage: PO
     Route: 048
  20. LORAZEPAM [Suspect]
     Indication: COMPLETED SUICIDE
     Dosage: PO
     Route: 048

REACTIONS (10)
  - HYPOTENSION [None]
  - OVERDOSE [None]
  - BRONCHOPNEUMONIA [None]
  - DRUG SCREEN POSITIVE [None]
  - HOMICIDE [None]
  - PULMONARY OEDEMA [None]
  - COMPLETED SUICIDE [None]
  - UNRESPONSIVE TO STIMULI [None]
  - PYREXIA [None]
  - EMPHYSEMA [None]
